FAERS Safety Report 9704192 (Version 3)
Quarter: 2013Q4

REPORT INFORMATION
  Report Type: Report from Study
  Country: PL (occurrence: PL)
  Receive Date: 20131122
  Receipt Date: 20131224
  Transmission Date: 20140711
  Serious: Yes (Hospitalization)
  Sender: FDA-Public Use
  Company Number: PL-SA-CAMP-1002878

PATIENT
  Age: 35 Year
  Sex: Female
  Weight: 50.3 kg

DRUGS (7)
  1. ALEMTUZUMAB [Suspect]
     Indication: MULTIPLE SCLEROSIS
     Dosage: 12 MG, QDX3
     Route: 042
     Dates: start: 20100406, end: 20100408
  2. ALEMTUZUMAB [Suspect]
     Indication: MULTIPLE SCLEROSIS
     Dosage: 12 MG, QD
     Route: 042
     Dates: start: 20090420, end: 20090420
  3. ALEMTUZUMAB [Suspect]
     Indication: MULTIPLE SCLEROSIS
     Dosage: 12 MG, QD
     Route: 042
     Dates: start: 20090330, end: 20090402
  4. METHYLPREDNISOLONE [Concomitant]
     Indication: MULTIPLE SCLEROSIS
     Dosage: 1 G, QDX3
     Route: 042
     Dates: start: 20090330, end: 20090401
  5. METHYLPREDNISOLONE [Concomitant]
     Indication: PREMEDICATION
     Dosage: 1 G, QDX3
     Route: 042
     Dates: start: 20090330, end: 20090401
  6. METHYLPREDNISOLONE [Concomitant]
     Indication: MULTIPLE SCLEROSIS
     Dosage: 1 G, QDX3
     Route: 042
     Dates: start: 20100406, end: 20100408
  7. METHYLPREDNISOLONE [Concomitant]
     Indication: PREMEDICATION
     Dosage: 1 G, QDX3
     Route: 042
     Dates: start: 20100406, end: 20100408

REACTIONS (1)
  - Hyperthyroidism [Not Recovered/Not Resolved]
